FAERS Safety Report 12218866 (Version 2)
Quarter: 2017Q2

REPORT INFORMATION
  Report Type: Spontaneous
  Country: CH (occurrence: CH)
  Receive Date: 20160329
  Receipt Date: 20170623
  Transmission Date: 20170830
  Serious: Yes (Hospitalization, Other)
  Sender: FDA-Public Use
  Company Number: CH-BRISTOL-MYERS SQUIBB COMPANY-BMS-2016-019850

PATIENT
  Age: 56 Year
  Sex: Male
  Weight: 68 kg

DRUGS (13)
  1. ELIQUIS [Suspect]
     Active Substance: APIXABAN
     Indication: CEREBROVASCULAR ACCIDENT PROPHYLAXIS
     Route: 065
  2. KALIUM HAUSMANN EFFERVETTES [Concomitant]
     Indication: PRODUCT USED FOR UNKNOWN INDICATION
     Route: 048
  3. KEPPRA [Concomitant]
     Active Substance: LEVETIRACETAM
     Indication: PRODUCT USED FOR UNKNOWN INDICATION
     Dosage: 1000 MG, QD
     Route: 065
  4. RANIMED [Concomitant]
     Active Substance: RANITIDINE HYDROCHLORIDE
     Indication: PRODUCT USED FOR UNKNOWN INDICATION
     Dosage: 150 MG, QD
     Route: 065
  5. ROCALTROL [Concomitant]
     Active Substance: CALCITRIOL
     Indication: PRODUCT USED FOR UNKNOWN INDICATION
     Dosage: 0.5 UNK, UNK
     Route: 048
  6. IMODIUM [Concomitant]
     Active Substance: LOPERAMIDE HYDROCHLORIDE
     Indication: PRODUCT USED FOR UNKNOWN INDICATION
     Dosage: 12 MG, QD
     Route: 048
  7. ELIQUIS [Suspect]
     Active Substance: APIXABAN
     Indication: THROMBOSIS PROPHYLAXIS
     Dosage: 5 MG/DIE (2,5-0-2,5)
     Route: 048
     Dates: start: 20150828, end: 20160106
  8. NATRIUMBIKARBONAT [Concomitant]
     Indication: PRODUCT USED FOR UNKNOWN INDICATION
     Route: 048
  9. VIMPAT [Concomitant]
     Active Substance: LACOSAMIDE
     Indication: PRODUCT USED FOR UNKNOWN INDICATION
     Dosage: 100 MG, QD
     Route: 048
  10. CALCIUM-ACETAT-PHOSPHATBINDER [Concomitant]
     Indication: PRODUCT USED FOR UNKNOWN INDICATION
     Dosage: 2400 MG, QD
     Route: 048
  11. MARCOUMAR [Suspect]
     Active Substance: PHENPROCOUMON
     Indication: DEEP VEIN THROMBOSIS
     Route: 065
  12. DE-URSIL [Concomitant]
     Indication: PRODUCT USED FOR UNKNOWN INDICATION
     Dosage: 900 MG, QD
     Route: 048
  13. MARCOUMAR [Suspect]
     Active Substance: PHENPROCOUMON
     Indication: PULMONARY EMBOLISM
     Dosage: UNK
     Route: 048
     Dates: start: 2015

REACTIONS (9)
  - Epistaxis [Recovered/Resolved]
  - Lower gastrointestinal haemorrhage [Recovered/Resolved]
  - Gastrointestinal haemorrhage [Recovered/Resolved]
  - Haemorrhage [Unknown]
  - Anal haemorrhage [Unknown]
  - Circulatory collapse [Unknown]
  - Gastric ulcer [Unknown]
  - Packed red blood cell transfusion [Unknown]
  - Anaemia [Recovered/Resolved]

NARRATIVE: CASE EVENT DATE: 20150806
